FAERS Safety Report 8840595 (Version 2)
Quarter: 2012Q4

REPORT INFORMATION
  Report Type: Report from Study
  Country: DE (occurrence: DE)
  Receive Date: 20121015
  Receipt Date: 20121204
  Transmission Date: 20130627
  Serious: Yes (Hospitalization)
  Sender: FDA-Public Use
  Company Number: DE-ABBOTT-12P-062-0993935-00

PATIENT
  Age: 27 Year
  Sex: Female
  Weight: 65 kg

DRUGS (4)
  1. HUMIRA [Suspect]
     Indication: PSORIATIC ARTHROPATHY
     Route: 058
     Dates: start: 201203
  2. CELECOXIB [Concomitant]
     Indication: PSORIATIC ARTHROPATHY
     Dosage: 2x200 mg
     Route: 048
  3. HORMONAL CONTRACEPTIVE [Concomitant]
     Indication: PRODUCT USED FOR UNKNOWN INDICATION
     Route: 048
  4. IBEROGAST [Concomitant]
     Indication: GASTROINTESTINAL DISORDER
     Dosage: AS NEEDED

REACTIONS (1)
  - Ovarian cyst ruptured [Recovered/Resolved]
